FAERS Safety Report 9260542 (Version 1)
Quarter: 2013Q2

REPORT INFORMATION
  Report Type: Spontaneous
  Country: US (occurrence: US)
  Receive Date: 20130429
  Receipt Date: 20130429
  Transmission Date: 20140414
  Serious: No
  Sender: FDA-Public Use
  Company Number: US-BAYER-2013-052500

PATIENT
  Sex: Female

DRUGS (2)
  1. GIANVI [Suspect]
     Dosage: UNK
     Route: 048
  2. GIANVI [Suspect]
     Dosage: UNK
     Route: 048
     Dates: start: 2012

REACTIONS (2)
  - Metrorrhagia [None]
  - Menstruation delayed [None]
